FAERS Safety Report 8407831-1 (Version None)
Quarter: 2012Q2

REPORT INFORMATION
  Report Type: 
  Country: None (occurrence: None)
  Receive Date: 20120604
  Receipt Date: 20120524
  Transmission Date: 20120825
  Serious: Yes (Hospitalization, Other)
  Sender: FDA-Public Use
  Company Number: US-ASTRAZENECA-2010SE10139

PATIENT
  Age: 63 Year
  Sex: Female
  Weight: 70.8 kg

DRUGS (14)
  1. VITAMIN D [Concomitant]
  2. PROLIA [Concomitant]
  3. PULMICORT FLEXHALER [Suspect]
     Dosage: PULMICORT TWO TIMES A DAY
     Route: 055
  4. GENERIC TRENTAL [Concomitant]
  5. PULMICORT FLEXHALER [Suspect]
     Route: 055
  6. ACTONEL [Concomitant]
  7. PULMICORT FLEXHALER [Suspect]
     Dosage: PULMICORT TWO TIMES A DAY
     Route: 055
  8. SINGULAIR [Concomitant]
  9. ALBUTEROL [Concomitant]
  10. LONG TERM STEROID [Suspect]
     Route: 065
  11. TRANSDERMAL CREAM [Concomitant]
  12. SYMBICORT [Suspect]
     Indication: ASTHMA
     Dosage: 80/4.5, 2 PUFFS BID
     Route: 055
     Dates: start: 20080101
  13. PULMICORT FLEXHALER [Suspect]
     Dosage: ONE PUFF A DAY
     Route: 055
  14. BIODENTICAL HORMONES IN CREAM FORM [Concomitant]

REACTIONS (10)
  - BONE DENSITY DECREASED [None]
  - OSTEOPENIA [None]
  - UTERINE PROLAPSE [None]
  - OSTEOPOROSIS [None]
  - DRUG EFFECT DECREASED [None]
  - WHEEZING [None]
  - INCORRECT DOSE ADMINISTERED [None]
  - INTENTIONAL DRUG MISUSE [None]
  - SKIN CANCER [None]
  - EXOSTOSIS [None]
